FAERS Safety Report 9722410 (Version 2)
Quarter: 2014Q1

REPORT INFORMATION
  Report Type: Spontaneous
  Country: GB (occurrence: GB)
  Receive Date: 20131202
  Receipt Date: 20140106
  Transmission Date: 20141002
  Serious: Yes (Other)
  Sender: FDA-Public Use
  Company Number: PHFR2013GB006841

PATIENT
  Age: 34 Year
  Sex: Female

DRUGS (2)
  1. CLIMAVAL [Suspect]
     Indication: HYSTERECTOMY
     Dosage: 1 MG, QD
     Route: 048
     Dates: start: 2005
  2. RIZATRIPTAN [Concomitant]
     Dosage: UNK UKN, UNK

REACTIONS (4)
  - Joint swelling [Not Recovered/Not Resolved]
  - Palpitations [Not Recovered/Not Resolved]
  - Migraine [Not Recovered/Not Resolved]
  - Dizziness [Not Recovered/Not Resolved]
